FAERS Safety Report 20222395 (Version 1)
Quarter: 2021Q4

REPORT INFORMATION
  Report Type: Report from Study
  Country: US (occurrence: US)
  Receive Date: 20211223
  Receipt Date: 20211223
  Transmission Date: 20220303
  Serious: Yes (Hospitalization)
  Sender: FDA-Public Use
  Company Number: US-GLAXOSMITHKLINE-US2021AMR260553

PATIENT
  Age: 54 Year
  Sex: Female

DRUGS (1)
  1. MEPOLIZUMAB [Suspect]
     Active Substance: MEPOLIZUMAB
     Indication: Eosinophilic granulomatosis with polyangiitis
     Dosage: 300 MG, Z, THREE 100 MG INJECTIONS
     Route: 042
     Dates: start: 2019

REACTIONS (4)
  - Hospitalisation [Unknown]
  - Heart transplant [Unknown]
  - Surgery [Unknown]
  - Tricuspid valve repair [Unknown]

NARRATIVE: CASE EVENT DATE: 20190905
